FAERS Safety Report 6383300-8 (Version None)
Quarter: 2009Q4

REPORT INFORMATION
  Report Type: 
  Country: None (occurrence: None)
  Receive Date: 20091001
  Receipt Date: 20090921
  Transmission Date: 20100525
  Serious: Yes (Hospitalization)
  Sender: FDA-Public Use
  Company Number: US-BIOGENIDEC-2009BI024782

PATIENT
  Sex: Female
  Weight: 81 kg

DRUGS (12)
  1. TYSABRI [Suspect]
     Indication: MULTIPLE SCLEROSIS
     Route: 042
     Dates: start: 20060914
  2. FLUOXETINE [Concomitant]
     Route: 048
  3. BUPROPION HCL [Concomitant]
     Route: 048
  4. MORPHINE SULFATE [Concomitant]
     Route: 048
  5. OMEPRAZOLE [Concomitant]
     Route: 048
  6. LYRICA [Concomitant]
     Route: 048
  7. HYDROXYCHLOROQUINE [Concomitant]
     Route: 048
  8. OXYCODONE HCL [Concomitant]
     Route: 048
  9. MS CONTIN [Concomitant]
     Route: 048
  10. CLONAZEPAM [Concomitant]
     Route: 048
  11. CLOTRIMAZOLE [Concomitant]
  12. RESTASIS [Concomitant]

REACTIONS (6)
  - HYPERPLASIA [None]
  - MULTIPLE SCLEROSIS RELAPSE [None]
  - NAUSEA [None]
  - RESPIRATORY TRACT INFECTION [None]
  - SYNCOPE [None]
  - VOMITING [None]
